FAERS Safety Report 15667926 (Version 3)
Quarter: 2019Q2

REPORT INFORMATION
  Report Type: Spontaneous
  Country: RO (occurrence: RO)
  Receive Date: 20181128
  Receipt Date: 20190606
  Transmission Date: 20190711
  Serious: Yes (Hospitalization)
  Sender: FDA-Public Use
  Company Number: RO-MYLANLABS-2018M1087625

PATIENT
  Age: 54 Year
  Sex: Male

DRUGS (13)
  1. LERCANIDIPINE [Suspect]
     Active Substance: LERCANIDIPINE
     Indication: PRODUCT USED FOR UNKNOWN INDICATION
     Dosage: 20 MILLIGRAM, QD (1X/DAY)
     Route: 065
  2. LERCANIDIPINE [Suspect]
     Active Substance: LERCANIDIPINE
     Indication: HYPERTENSION
  3. METHYLPREDNISOLON                  /00049601/ [Suspect]
     Active Substance: METHYLPREDNISOLONE
     Indication: SKIN LESION
     Dosage: UNK
  4. HIDROCORTISONA /00028607/ [Suspect]
     Active Substance: HYDROCORTISONE HEMISUCCINATE ANHYDROUS
     Indication: SKIN LESION
     Dosage: UNK
  5. ATORVASTATIN [Suspect]
     Active Substance: ATORVASTATIN
     Indication: DYSLIPIDAEMIA
     Dosage: 20 MILLIGRAM, QD (1X/DAY)
     Route: 065
  6. NEBIVOLOL. [Suspect]
     Active Substance: NEBIVOLOL
     Indication: HYPERTENSION
     Dosage: 2.5 MILLIGRAM, QD (1X/DAY)
     Route: 065
  7. HYDROCORTISON                      /00028601/ [Suspect]
     Active Substance: HYDROCORTISONE
     Indication: SKIN LESION
     Dosage: UNK
  8. INDAPAMIDE. [Suspect]
     Active Substance: INDAPAMIDE
     Indication: PRODUCT USED FOR UNKNOWN INDICATION
     Dosage: 1.5 MILLIGRAM, QD (1X/DAY)
     Route: 065
  9. HYDROCORTISON                      /00028601/ [Suspect]
     Active Substance: HYDROCORTISONE
     Indication: ROSAI-DORFMAN SYNDROME
  10. LORATADINE. [Suspect]
     Active Substance: LORATADINE
     Indication: ROSAI-DORFMAN SYNDROME
     Dosage: UNK
  11. DICLOFENAC [Suspect]
     Active Substance: DICLOFENAC
     Indication: ROSAI-DORFMAN SYNDROME
     Dosage: UNK
  12. INDAPAMIDE. [Suspect]
     Active Substance: INDAPAMIDE
     Indication: HYPERTENSION
  13. FUSIDIC ACID [Suspect]
     Active Substance: FUSIDIC ACID
     Indication: SKIN LESION
     Dosage: UNK

REACTIONS (5)
  - Rash papular [Recovered/Resolved]
  - Pruritus [Unknown]
  - Rosai-Dorfman syndrome [Unknown]
  - Rash [Unknown]
  - Drug ineffective for unapproved indication [Unknown]

NARRATIVE: CASE EVENT DATE: 2014
